FAERS Safety Report 10206019 (Version 1)
Quarter: 2014Q2

REPORT INFORMATION
  Report Type: Spontaneous
  Country: CH (occurrence: None)
  Receive Date: 20140527
  Receipt Date: 20140527
  Transmission Date: 20141212
  Serious: Yes (Hospitalization)
  Sender: FDA-Public Use
  Company Number: 2014P1004362

PATIENT
  Age: 60 Year
  Sex: Male
  Weight: 89.81 kg

DRUGS (13)
  1. CEFUROXIME [Suspect]
     Indication: ANTIBIOTIC PROPHYLAXIS
     Route: 042
     Dates: start: 20140114, end: 20140114
  2. DIPYRONE [Suspect]
     Indication: PERIOPERATIVE ANALGESIA
     Route: 042
     Dates: start: 20140111, end: 20140115
  3. KONAKION (PHYTOMENADIONE HEPARIN) [Concomitant]
  4. DISOPRIVAN (PROPOFOL) [Concomitant]
  5. FENTANYL [Concomitant]
  6. MORPHINE [Concomitant]
  7. ESMERON (ROCURONIUM BRINUDE) [Concomitant]
  8. EPHEDRIN (EPHEDRINE) [Concomitant]
  9. ROBINUL-NEOSTIGMIN [Concomitant]
  10. PERFALGAN (PARACETAMOL) [Concomitant]
  11. ZOFRAN (ONDANSETRON HYDROCHLORIDE) [Concomitant]
  12. CLEXANE (ENOXAPARIN) [Concomitant]
  13. DROPERIDOL [Concomitant]

REACTIONS (1)
  - Acute generalised exanthematous pustulosis [None]
